FAERS Safety Report 15263506 (Version 2)
Quarter: 2018Q3

REPORT INFORMATION
  Report Type: Spontaneous
  Country: AU (occurrence: AU)
  Receive Date: 20180810
  Receipt Date: 20180816
  Transmission Date: 20181010
  Serious: Yes (Death, Other)
  Sender: FDA-Public Use
  Company Number: AU-ROCHE-2168024

PATIENT
  Age: 70 Year
  Sex: Female

DRUGS (1)
  1. GAZYVA [Suspect]
     Active Substance: OBINUTUZUMAB
     Indication: B-CELL LYMPHOMA REFRACTORY
     Dosage: AS PER B6 PROTOCOL
     Route: 042
     Dates: start: 20180726, end: 20180727

REACTIONS (2)
  - Septic shock [Fatal]
  - Sepsis [Unknown]

NARRATIVE: CASE EVENT DATE: 20180730
